FAERS Safety Report 4746620-6 (Version None)
Quarter: 2005Q3

REPORT INFORMATION
  Report Type: 
  Country: None (occurrence: None)
  Receive Date: 20050815
  Receipt Date: 20050801
  Transmission Date: 20060218
  Serious: Yes (Hospitalization, Other)
  Sender: FDA-Public Use
  Company Number: 2005102436

PATIENT
  Sex: Male
  Weight: 77.1115 kg

DRUGS (11)
  1. VIAGRA [Suspect]
     Indication: ERECTILE DYSFUNCTION
     Dosage: SEE IMAGE
  2. ZESTRIL [Concomitant]
  3. CENTRUM (MINERALS NOS, VITAMINS NOS) [Concomitant]
  4. LIPITOR [Concomitant]
  5. AREM (NITRAZEPAM) [Concomitant]
  6. GLUCOSAMINE (GLUCOSAMINE) [Concomitant]
  7. SPIRIVA [Concomitant]
  8. CALTRATE (CALCIUM CARBONATE) [Concomitant]
  9. ACTONEL [Concomitant]
  10. MENCALISVIT (CALCIUM PHOSPHATE, COBAMAMIDE, ERGOCALCIFEROL, LYSINE HYD [Concomitant]
  11. ACETYLSALICYLIC ACID SRT [Concomitant]

REACTIONS (1)
  - FLUSHING [None]
